FAERS Safety Report 5278750-7 (Version None)
Quarter: 2007Q1

REPORT INFORMATION
  Report Type: 
  Country: None (occurrence: None)
  Receive Date: 20061213
  Receipt Date: 20050421
  Transmission Date: 20070707
  Serious: No
  Sender: FDA-Public Use
  Company Number: 2005UW06278

PATIENT

DRUGS (2)
  1. SEROQUEL [Suspect]
  2. ALLERGY MEDICATIONS [Concomitant]

REACTIONS (2)
  - AGRANULOCYTOSIS [None]
  - EPISTAXIS [None]
